FAERS Safety Report 10200685 (Version 5)
Quarter: 2014Q4

REPORT INFORMATION
  Report Type: Spontaneous
  Country: US (occurrence: US)
  Receive Date: 20140528
  Receipt Date: 20141224
  Transmission Date: 20150528
  Serious: Yes (Hospitalization, Other)
  Sender: FDA-Public Use
  Company Number: US-AMGEN-USASP2014038970

PATIENT
  Age: 53 Year
  Sex: Male

DRUGS (2)
  1. ENBREL [Suspect]
     Active Substance: ETANERCEPT
     Indication: RHEUMATOID ARTHRITIS
     Dosage: 50 MG, QWK
     Route: 065
     Dates: start: 20120815, end: 20141124
  2. METHOTREXATE [Concomitant]
     Active Substance: METHOTREXATE
     Dosage: UNK

REACTIONS (34)
  - Drug effect decreased [Not Recovered/Not Resolved]
  - Fatigue [Not Recovered/Not Resolved]
  - Pain [Not Recovered/Not Resolved]
  - Herpes zoster [Unknown]
  - Gastric haemorrhage [Not Recovered/Not Resolved]
  - Haematuria [Recovered/Resolved]
  - Malaise [Not Recovered/Not Resolved]
  - Musculoskeletal pain [Not Recovered/Not Resolved]
  - Chest X-ray abnormal [Not Recovered/Not Resolved]
  - Skin mass [Recovered/Resolved]
  - Joint swelling [Not Recovered/Not Resolved]
  - Fall [Unknown]
  - Spinal fracture [Unknown]
  - Meningitis viral [Recovered/Resolved]
  - Nasopharyngitis [Not Recovered/Not Resolved]
  - Local swelling [Not Recovered/Not Resolved]
  - Ear pain [Not Recovered/Not Resolved]
  - Back pain [Not Recovered/Not Resolved]
  - Red blood cell count decreased [Recovered/Resolved]
  - Anaemia [Not Recovered/Not Resolved]
  - Back injury [Recovered/Resolved]
  - Kidney contusion [Recovered/Resolved]
  - Animal scratch [Recovered/Resolved]
  - Pyrexia [Not Recovered/Not Resolved]
  - Burning sensation [Not Recovered/Not Resolved]
  - Rales [Not Recovered/Not Resolved]
  - Mobility decreased [Not Recovered/Not Resolved]
  - Neuralgia [Recovered/Resolved]
  - Exostosis [Not Recovered/Not Resolved]
  - Pain in extremity [Not Recovered/Not Resolved]
  - Gait disturbance [Not Recovered/Not Resolved]
  - Inflammation [Not Recovered/Not Resolved]
  - Pneumonia [Not Recovered/Not Resolved]
  - Depression [Not Recovered/Not Resolved]

NARRATIVE: CASE EVENT DATE: 2012
